FAERS Safety Report 14967576 (Version 1)
Quarter: 2018Q2

REPORT INFORMATION
  Report Type: Spontaneous
  Country: US (occurrence: US)
  Receive Date: 20180511
  Receipt Date: 20180511
  Transmission Date: 20180711
  Serious: No
  Sender: FDA-Public Use
  Company Number: None

PATIENT
  Sex: Male

DRUGS (2)
  1. DESONIDE. [Suspect]
     Active Substance: DESONIDE
  2. HYDROCORTISONE. [Suspect]
     Active Substance: HYDROCORTISONE

REACTIONS (3)
  - Drug intolerance [None]
  - Skin atrophy [None]
  - Treatment failure [None]
